FAERS Safety Report 12403515 (Version 1)
Quarter: 2016Q2

REPORT INFORMATION
  Report Type: Spontaneous
  Country: AU (occurrence: AU)
  Receive Date: 20160525
  Receipt Date: 20160525
  Transmission Date: 20160815
  Serious: Yes (Hospitalization, Other)
  Sender: FDA-Public Use
  Company Number: AU-009507513-1605AUS007481

PATIENT
  Age: 74 Year
  Sex: Male
  Weight: 95 kg

DRUGS (16)
  1. ROCURONIUM BROMIDE. [Suspect]
     Active Substance: ROCURONIUM BROMIDE
     Indication: INDUCTION OF ANAESTHESIA
     Dosage: 40 MG, UNK
     Route: 042
  2. BUPIVACAINE HYDROCHLORIDE (+) LIDOCAINE [Suspect]
     Active Substance: BUPIVACAINE HYDROCHLORIDE\LIDOCAINE HYDROCHLORIDE
     Indication: LOCAL ANAESTHESIA
     Dosage: 6 ML 2% LIGNOCAINE AND 0.5% BUPIVAKAINE 50:50 MIX
  3. NEXIUM [Concomitant]
     Active Substance: ESOMEPRAZOLE MAGNESIUM
     Dosage: UNK
  4. PROPOFOL. [Suspect]
     Active Substance: PROPOFOL
     Indication: INDUCTION OF ANAESTHESIA
     Dosage: 140 MG, UNK
     Route: 042
  5. METOPROLOL. [Concomitant]
     Active Substance: METOPROLOL
     Dosage: UNK
  6. ASPIRIN. [Concomitant]
     Active Substance: ASPIRIN
     Dosage: UNK
  7. GTN [Concomitant]
     Active Substance: NITROGLYCERIN
     Dosage: PRN, FORMULATION: SPRAY
  8. PROPOFOL. [Suspect]
     Active Substance: PROPOFOL
     Dosage: 100 MG, UNK
     Route: 042
  9. PROPOFOL. [Suspect]
     Active Substance: PROPOFOL
     Dosage: 20 MG, UNK
     Route: 042
  10. SEVOFLURANE. [Suspect]
     Active Substance: SEVOFLURANE
     Dosage: 3-4% IN AIR/02 MIX.
  11. FENTANYL. [Suspect]
     Active Substance: FENTANYL
     Dosage: 100 MICROGRAM, UNK
     Route: 042
  12. GLYCOPYRROLATE (+) NEOSTIGMINE METHYLSULFATE [Suspect]
     Active Substance: GLYCOPYRROLATE\NEOSTIGMINE
     Indication: ANAESTHESIA REVERSAL
     Dosage: 2.5 MG/0.4 MG, UNK
  13. SUCCINYLCHOLINE CHLORIDE. [Suspect]
     Active Substance: SUCCINYLCHOLINE CHLORIDE
     Dosage: 100 MG, UNK
     Route: 042
  14. MIDAZOLAM [Suspect]
     Active Substance: MIDAZOLAM\MIDAZOLAM HYDROCHLORIDE
     Dosage: 2 MG, UNK
     Route: 042
  15. NALOXONE (NALOXONE HYDROCHLORIDE) [Suspect]
     Active Substance: NALOXONE HYDROCHLORIDE
     Dosage: 0.4 MG, UNK
     Route: 042
  16. PANADOL [Concomitant]
     Active Substance: ACETAMINOPHEN
     Dosage: UNK

REACTIONS (16)
  - Limb discomfort [Recovered/Resolved]
  - Anaesthetic complication pulmonary [Recovered/Resolved]
  - Depressed level of consciousness [Recovered/Resolved]
  - Unresponsive to stimuli [Recovered/Resolved]
  - Electrocardiogram ST segment depression [Recovered/Resolved]
  - Heart rate increased [Recovered/Resolved]
  - Cough [Recovered/Resolved]
  - Troponin increased [Recovered/Resolved]
  - Hypertensive crisis [Recovered/Resolved]
  - Cyanosis [Recovered/Resolved]
  - Acute myocardial infarction [Recovered/Resolved]
  - Endotracheal intubation complication [Recovered/Resolved]
  - Emotional distress [Recovered/Resolved]
  - Respiratory failure [Recovered/Resolved]
  - Dyskinesia [Recovered/Resolved]
  - Oxygen saturation decreased [Recovered/Resolved]
